FAERS Safety Report 6669811-6 (Version None)
Quarter: 2010Q2

REPORT INFORMATION
  Report Type: 
  Country: None (occurrence: None)
  Receive Date: 20100402
  Receipt Date: 20100326
  Transmission Date: 20101027
  Serious: Yes (Other)
  Sender: FDA-Public Use
  Company Number: 2010SP018547

PATIENT
  Age: 29 Year
  Sex: Female

DRUGS (2)
  1. NORCURON [Suspect]
     Indication: MUSCLE RELAXANT THERAPY
     Dosage: IV
     Route: 042
  2. FENTANYL [Concomitant]

REACTIONS (3)
  - BREATH HOLDING [None]
  - BRONCHOSPASM [None]
  - INCREASED BRONCHIAL SECRETION [None]
